FAERS Safety Report 4990093-5 (Version None)
Quarter: 2006Q2

REPORT INFORMATION
  Report Type: 
  Country: None (occurrence: None)
  Receive Date: 20060503
  Receipt Date: 20051013
  Transmission Date: 20061013
  Serious: Yes (Hospitalization)
  Sender: FDA-Public Use
  Company Number: PR-MERCK-0510USA07312

PATIENT
  Age: 74 Year
  Sex: Female
  Weight: 73 kg

DRUGS (3)
  1. VIOXX [Suspect]
     Indication: RHEUMATOID ARTHRITIS
     Route: 048
     Dates: start: 20020101, end: 20040101
  2. HUMULIN [Concomitant]
     Route: 065
  3. NEURONTIN [Concomitant]
     Route: 065

REACTIONS (9)
  - ANGINA PECTORIS [None]
  - ANXIETY DISORDER [None]
  - BALANCE DISORDER [None]
  - CEREBROVASCULAR ACCIDENT [None]
  - CHEST PAIN [None]
  - HEMIPARESIS [None]
  - HYPERTENSION [None]
  - PANIC ATTACK [None]
  - STOMACH DISCOMFORT [None]
